FAERS Safety Report 4720824-0 (Version None)
Quarter: 2005Q3

REPORT INFORMATION
  Report Type: 
  Country: None (occurrence: None)
  Receive Date: 20050720
  Receipt Date: 20050715
  Transmission Date: 20060218
  Serious: Yes (Death)
  Sender: FDA-Public Use
  Company Number: 2005S1006256

PATIENT
  Age: 66 Year
  Sex: Male

DRUGS (4)
  1. FENTANYL [Suspect]
     Indication: PAIN
     Dosage: 50 MCG/HR; TDER
     Route: 062
     Dates: start: 20050713, end: 20050713
  2. LORAZEPAM [Concomitant]
  3. INSULIN [Concomitant]
  4. MORPHINE SULFATE [Concomitant]

REACTIONS (1)
  - ORAL INTAKE REDUCED [None]
